FAERS Safety Report 16688592 (Version 1)
Quarter: 2019Q4

REPORT INFORMATION
  Report Type: Spontaneous
  Country: US (occurrence: US)
  Receive Date: 20190809
  Receipt Date: 20190809
  Transmission Date: 20200122
  Serious: Yes (Hospitalization)
  Sender: FDA-Public Use
  Company Number: None

PATIENT
  Age: 49 Year
  Sex: Female
  Weight: 65.25 kg

DRUGS (1)
  1. ISONIAZIDE [Suspect]
     Active Substance: ISONIAZID
     Indication: LATENT TUBERCULOSIS
     Route: 048
     Dates: start: 20190318

REACTIONS (6)
  - Pruritus [None]
  - Cholelithiasis [None]
  - Hepatitis acute [None]
  - Transaminases increased [None]
  - Scleral discolouration [None]
  - Chromaturia [None]

NARRATIVE: CASE EVENT DATE: 20190710
